FAERS Safety Report 4963730-9 (Version None)
Quarter: 2006Q1

REPORT INFORMATION
  Report Type: 
  Country: None (occurrence: None)
  Receive Date: 20060330
  Receipt Date: 20060316
  Transmission Date: 20060701
  Serious: Yes (Hospitalization)
  Sender: FDA-Public Use
  Company Number: IE200602002366

PATIENT
  Age: 18 Year
  Sex: Male
  Weight: 111 kg

DRUGS (2)
  1. CYMBALTA [Suspect]
     Indication: DEPRESSION
     Dosage: SEE IMAGE
     Route: 048
     Dates: start: 20051221, end: 20060130
  2. ALPRAZOLAM [Concomitant]

REACTIONS (8)
  - ANOREXIA [None]
  - DEPRESSION [None]
  - DIZZINESS [None]
  - DRUG INEFFECTIVE [None]
  - HYPOTENSION [None]
  - POSTURE ABNORMAL [None]
  - SYNCOPE VASOVAGAL [None]
  - WEIGHT DECREASED [None]
